FAERS Safety Report 6007368-3 (Version None)
Quarter: 2008Q4

REPORT INFORMATION
  Report Type: 
  Country: None (occurrence: None)
  Receive Date: 20081217
  Receipt Date: 20080318
  Transmission Date: 20090506
  Serious: No
  Sender: FDA-Public Use
  Company Number: US-ASTRAZENECA-2008UW05455

PATIENT
  Age: 67 Year
  Sex: Female
  Weight: 63.5 kg

DRUGS (2)
  1. CRESTOR [Suspect]
     Indication: BLOOD CHOLESTEROL INCREASED
     Route: 048
  2. METFORMIN HCL [Concomitant]

REACTIONS (4)
  - COUGH [None]
  - DRY THROAT [None]
  - NASAL CONGESTION [None]
  - SNEEZING [None]
